FAERS Safety Report 24087454 (Version 1)
Quarter: 2024Q3

REPORT INFORMATION
  Report Type: Spontaneous
  Country: GB (occurrence: GB)
  Receive Date: 20240714
  Receipt Date: 20240714
  Transmission Date: 20241016
  Serious: Yes (Disabling, Other)
  Sender: B BRAUN
  Company Number: GB-B.Braun Medical Inc.-2159103

PATIENT
  Age: 58 Year
  Sex: Male
  Weight: 65 kg

DRUGS (2)
  1. ACETAMINOPHEN [Suspect]
     Active Substance: ACETAMINOPHEN
     Indication: Complex regional pain syndrome
  2. Pregabelin [Concomitant]

REACTIONS (3)
  - Deafness [Unknown]
  - Tinnitus [Unknown]
  - Withdrawal syndrome [Unknown]
